FAERS Safety Report 4437729-5 (Version None)
Quarter: 2004Q3

REPORT INFORMATION
  Report Type: 
  Country: None (occurrence: None)
  Receive Date: 20040827
  Receipt Date: 20040813
  Transmission Date: 20050211
  Serious: Yes (Hospitalization)
  Sender: FDA-Public Use
  Company Number: 208488

PATIENT
  Age: 33 Year
  Sex: Female

DRUGS (2)
  1. PULMOZYME [Suspect]
     Dosage: 2.5 MG, QD
  2. COLIMYCINE (COLISTIN SULFATE) [Concomitant]

REACTIONS (7)
  - BRONCHIAL INFECTION [None]
  - CAESAREAN SECTION [None]
  - DRUG EXPOSURE DURING PREGNANCY [None]
  - HAEMOPTYSIS [None]
  - PREGNANCY [None]
  - PREMATURE BABY [None]
  - WEIGHT DECREASED [None]
